FAERS Safety Report 5647817-3 (Version None)
Quarter: 2008Q1

REPORT INFORMATION
  Report Type: 
  Country: None (occurrence: None)
  Receive Date: 20080303
  Receipt Date: 20080228
  Transmission Date: 20080703
  Serious: No
  Sender: FDA-Public Use
  Company Number: US-BOEHRINGER INGELHEIM GMBH, GERMANY-2007-BP-26447BP

PATIENT
  Sex: Female

DRUGS (1)
  1. MIRAPEX [Suspect]
     Route: 048
     Dates: end: 20041115

REACTIONS (27)
  - AGGRESSION [None]
  - AGITATION [None]
  - AMNESIA [None]
  - ANOREXIA [None]
  - ANTISOCIAL BEHAVIOUR [None]
  - ANXIETY [None]
  - APHASIA [None]
  - ATTENTION DEFICIT/HYPERACTIVITY DISORDER [None]
  - DEPRESSED MOOD [None]
  - DEPRESSION [None]
  - FEELING ABNORMAL [None]
  - HAIR COLOUR CHANGES [None]
  - JOINT STIFFNESS [None]
  - JOINT SWELLING [None]
  - LOSS OF DREAMING [None]
  - MANIA [None]
  - MASKED FACIES [None]
  - OBSESSIVE-COMPULSIVE DISORDER [None]
  - PARAESTHESIA [None]
  - RAYNAUD'S PHENOMENON [None]
  - SENSORY LOSS [None]
  - SLEEP DISORDER [None]
  - SOMNOLENCE [None]
  - STRESS [None]
  - TEMPERATURE REGULATION DISORDER [None]
  - TONGUE GEOGRAPHIC [None]
  - WEIGHT DECREASED [None]
